FAERS Safety Report 10025307 (Version 1)
Quarter: 2014Q1

REPORT INFORMATION
  Report Type: Spontaneous
  Country: CA (occurrence: CA)
  Receive Date: 20140320
  Receipt Date: 20140320
  Transmission Date: 20141002
  Serious: Yes (Hospitalization)
  Sender: FDA-Public Use
  Company Number: CA-GLAXOSMITHKLINE-A1065714A

PATIENT
  Age: 70 Year
  Sex: Male

DRUGS (5)
  1. ZANTAC [Suspect]
     Indication: PRODUCT USED FOR UNKNOWN INDICATION
     Route: 065
  2. COVERSYL [Suspect]
     Indication: PRODUCT USED FOR UNKNOWN INDICATION
     Route: 065
  3. LIPITOR [Suspect]
     Indication: PRODUCT USED FOR UNKNOWN INDICATION
     Route: 065
  4. TARCEVA [Suspect]
     Indication: PRODUCT USED FOR UNKNOWN INDICATION
     Dosage: 150MG PER DAY
     Route: 048
  5. ZYPREXA [Suspect]
     Indication: PRODUCT USED FOR UNKNOWN INDICATION
     Route: 065

REACTIONS (2)
  - Pancreatitis [Not Recovered/Not Resolved]
  - Palmar-plantar erythrodysaesthesia syndrome [Not Recovered/Not Resolved]
